FAERS Safety Report 7701629-5 (Version None)
Quarter: 2011Q3

REPORT INFORMATION
  Report Type: 
  Country: None (occurrence: None)
  Receive Date: 20110822
  Receipt Date: 20110808
  Transmission Date: 20111222
  Serious: Yes (Hospitalization)
  Sender: FDA-Public Use
  Company Number: HU-UCBSA-038888

PATIENT
  Sex: Male
  Weight: 94 kg

DRUGS (1)
  1. CERTOLIZUMAB PEGOL/PLACEBO [Suspect]
     Indication: ANKYLOSING SPONDYLITIS
     Route: 058

REACTIONS (1)
  - APPENDICITIS [None]
